FAERS Safety Report 18668356 (Version 1)
Quarter: 2020Q4

REPORT INFORMATION
  Report Type: Spontaneous
  Country: US (occurrence: US)
  Receive Date: 20201225
  Receipt Date: 20201225
  Transmission Date: 20210114
  Serious: Yes (Other)
  Sender: FDA-Public Use
  Company Number: None

PATIENT
  Age: 57 Year
  Sex: Female
  Weight: 112.5 kg

DRUGS (1)
  1. CASIRIVIMAB + IMDEVIMAB [Suspect]
     Active Substance: CASIRIVIMAB\IMDEVIMAB
     Indication: COVID-19
     Route: 042
     Dates: start: 20201224, end: 20201224

REACTIONS (5)
  - Diarrhoea [None]
  - Pyrexia [None]
  - Chest discomfort [None]
  - Hyperhidrosis [None]
  - Anal incontinence [None]

NARRATIVE: CASE EVENT DATE: 20201224
